FAERS Safety Report 13054250 (Version 6)
Quarter: 2017Q2

REPORT INFORMATION
  Report Type: Report from Study
  Country: US (occurrence: US)
  Receive Date: 20161222
  Receipt Date: 20170616
  Transmission Date: 20170830
  Serious: Yes (Hospitalization, Other)
  Sender: FDA-Public Use
  Company Number: US-PFIZER INC-2016578816

PATIENT
  Age: 50 Year
  Sex: Female

DRUGS (6)
  1. IBRANCE [Suspect]
     Active Substance: PALBOCICLIB
     Dosage: 100 MG, CYCLIC (DAYS 1-21 Q28 DAYS)
     Route: 048
  2. IBRANCE [Suspect]
     Active Substance: PALBOCICLIB
     Indication: BREAST CANCER
     Dosage: 125 MG, CYCLIC (QD 21 DAYS THEN 7 DAYS OFF, REPEATING)
     Route: 048
     Dates: start: 20160819
  3. LETROZOLE. [Concomitant]
     Active Substance: LETROZOLE
     Dosage: UNK, DAILY
     Dates: start: 20160603
  4. PANTOPRAZOLE [Concomitant]
     Active Substance: PANTOPRAZOLE
     Indication: GASTRITIS
     Dosage: 40 MG, 1X/DAY (QD)
     Route: 048
     Dates: start: 20161208
  5. MELOXICAM. [Concomitant]
     Active Substance: MELOXICAM
     Indication: MYALGIA
     Dosage: 15 MG, 1X/DAY (QD)
     Route: 048
     Dates: start: 2015
  6. GABAPENTIN. [Concomitant]
     Active Substance: GABAPENTIN
     Indication: HOT FLUSH
     Dosage: 300 MG, 1X/DAY (QHS)
     Route: 048
     Dates: start: 20160902

REACTIONS (9)
  - Fatigue [Not Recovered/Not Resolved]
  - Night sweats [Recovered/Resolved]
  - Gastritis [Unknown]
  - Neutropenia [Not Recovered/Not Resolved]
  - Dizziness [Recovered/Resolved]
  - Bone marrow failure [Unknown]
  - Oral discomfort [Recovered/Resolved]
  - Fall [Unknown]
  - Dyspepsia [Recovered/Resolved]

NARRATIVE: CASE EVENT DATE: 20160915
